FAERS Safety Report 8906021 (Version 1)
Quarter: 2012Q4

REPORT INFORMATION
  Report Type: 
  Country: CH (occurrence: CH)
  Receive Date: 20121109
  Receipt Date: 20121109
  Transmission Date: 20130627
  Serious: Yes (Hospitalization)
  Sender: FDA-Public Use
  Company Number: CH-GLAXOSMITHKLINE-B0841760A

PATIENT
  Age: 43 Year
  Sex: Female

DRUGS (4)
  1. LAMICTAL [Suspect]
     Indication: BIPOLAR DISORDER
     Route: 048
     Dates: start: 201107
  2. ABILIFY [Suspect]
     Indication: PRODUCT USED FOR UNKNOWN INDICATION
     Dosage: 30MG Per day
     Route: 048
     Dates: start: 201107
  3. PANTOZOL [Suspect]
     Indication: PRODUCT USED FOR UNKNOWN INDICATION
     Dosage: 40MG Per day
     Route: 048
     Dates: start: 20110814
  4. PRAZINE [Suspect]
     Indication: PRODUCT USED FOR UNKNOWN INDICATION
     Route: 048
     Dates: start: 20110824, end: 20111011

REACTIONS (7)
  - Oedema peripheral [Recovered/Resolved]
  - Muscle tightness [Recovered/Resolved]
  - Erythema [Recovered/Resolved]
  - Skin warm [Recovered/Resolved]
  - Weight increased [Unknown]
  - Thirst [Unknown]
  - Fatigue [Unknown]
